FAERS Safety Report 19553684 (Version 1)
Quarter: 2021Q3

REPORT INFORMATION
  Report Type: Spontaneous
  Country: FR (occurrence: FR)
  Receive Date: 20210714
  Receipt Date: 20210714
  Transmission Date: 20211014
  Serious: Yes (Hospitalization)
  Sender: FDA-Public Use
  Company Number: FR-ORGANON-O2107FRA001020

PATIENT
  Age: 16 Year
  Sex: Female
  Weight: 54 kg

DRUGS (1)
  1. NEXPLANON [Suspect]
     Active Substance: ETONOGESTREL
     Indication: CONTRACEPTION
     Dosage: 1 DOSAGE FORM, ONCE (1 TOTAL); IMPLANT FOR SUBCUTANEOUS USE
     Route: 058
     Dates: start: 20201202, end: 20210528

REACTIONS (1)
  - Phlebitis superficial [Recovered/Resolved]

NARRATIVE: CASE EVENT DATE: 20210510
